FAERS Safety Report 4349456-3 (Version None)
Quarter: 2004Q2

REPORT INFORMATION
  Report Type: 
  Country: None (occurrence: None)
  Receive Date: 20040426
  Receipt Date: 20040414
  Transmission Date: 20050107
  Serious: No
  Sender: FDA-Public Use
  Company Number: 2004CG00736

PATIENT
  Sex: Male

DRUGS (6)
  1. MOPRAL [Suspect]
     Dosage: 20 MG DAILY PO
     Route: 048
     Dates: start: 20030101
  2. LASIX [Concomitant]
  3. GARDENAL [Concomitant]
  4. TEGRETOL [Concomitant]
  5. DANTRIUM [Concomitant]
  6. BIOPEG [Concomitant]

REACTIONS (3)
  - COMA [None]
  - LEUKOPENIA [None]
  - THROMBOCYTOPENIA [None]
